FAERS Safety Report 18278400 (Version 1)
Quarter: 2020Q3

REPORT INFORMATION
  Report Type: Spontaneous
  Country: BR (occurrence: BR)
  Receive Date: 20200917
  Receipt Date: 20200917
  Transmission Date: 20201103
  Serious: Yes (Death, Hospitalization)
  Sender: FDA-Public Use
  Company Number: BR-AMERICAN REGENT INC-2020001883

PATIENT
  Age: 61 Year
  Sex: Male
  Weight: 88 kg

DRUGS (8)
  1. VENOFER [Suspect]
     Active Substance: IRON SUCROSE
     Indication: ANAEMIA
     Dosage: ONE AMPULE EVERY 15 DAYS (100 MG, 1 IN 15 D)
     Route: 042
     Dates: start: 20200124
  2. ENALAPRIL [Concomitant]
     Active Substance: ENALAPRIL
     Indication: HYPERTENSION
     Dosage: ONE TABLET DAILY IN THE MORNING IN FASTING CONDITION (1 DOSAGE FORMS, 1 IN 1 D)
     Route: 065
     Dates: start: 2005
  3. FERROUS SULFATE. [Concomitant]
     Active Substance: FERROUS SULFATE
     Indication: ANAEMIA
     Dosage: 2 DOSAGE FORM (1 DOSAGE FORMS, 2 IN 1 D)
     Route: 065
     Dates: start: 20020124
  4. TOPIRAMATE. [Concomitant]
     Active Substance: TOPIRAMATE
     Indication: ANXIETY
     Dosage: ONE TABLET DAILY AT NIGHT (1 DOSAGE FORMS, 1 IN 1 D)
     Route: 065
     Dates: start: 2005
  5. FLUOXETINE [Concomitant]
     Active Substance: FLUOXETINE HYDROCHLORIDE
     Indication: ANXIETY
     Dosage: TWO TABLETS DAILY IN THE MORNING
     Route: 065
     Dates: start: 2005
  6. SIBUTRAMINE [Concomitant]
     Active Substance: SIBUTRAMINE
     Indication: ANXIETY
     Dosage: ONE TABLET DAILY AT NIGHT (1 IN 1 D)
     Route: 065
     Dates: start: 2005
  7. VERAPAMIL [Concomitant]
     Active Substance: VERAPAMIL HYDROCHLORIDE
     Indication: HYPERTENSION
     Dosage: 2 DOSAGE FORM, (1 DOSAGE FORMS, 2 IN 1 D)
     Route: 065
     Dates: start: 2005
  8. FOLIC ACID. [Concomitant]
     Active Substance: FOLIC ACID
     Indication: ANAEMIA
     Dosage: ONE TABLET DAILY IN THE MORNING IN FASTING CONDITION (1 IN 1 D)
     Route: 065
     Dates: start: 20200124

REACTIONS (12)
  - Hepatic function abnormal [Unknown]
  - Weight decreased [Unknown]
  - Constipation [Unknown]
  - COVID-19 [Recovered/Resolved]
  - Kidney infection [Unknown]
  - Decreased appetite [Unknown]
  - Diarrhoea [Recovering/Resolving]
  - Cardiac arrest [Fatal]
  - Lung disorder [Unknown]
  - Asthenia [Unknown]
  - Anaemia [Fatal]
  - Hepatic cirrhosis [Fatal]

NARRATIVE: CASE EVENT DATE: 2020
